FAERS Safety Report 8618643-8 (Version None)
Quarter: 2012Q3

REPORT INFORMATION
  Report Type: 
  Country: None (occurrence: None)
  Receive Date: 20120814
  Receipt Date: 20120814
  Transmission Date: 20120928
  Serious: Yes (Other)
  Sender: FDA-Public Use
  Company Number: None

PATIENT
  Age: 64 Year
  Sex: Female
  Weight: 131.5431 kg

DRUGS (3)
  1. MESTINON [Suspect]
     Indication: MYASTHENIA GRAVIS
     Dosage: 60 MG, EVERY 4 HOURS, INTRAOCULAR
     Route: 031
     Dates: start: 20120504, end: 20120810
  2. PRADAXA [Suspect]
     Indication: MYASTHENIA GRAVIS
     Dosage: 150 MG, 2 DAY, INTRAOCULAR
     Route: 031
     Dates: start: 20120504, end: 20120724
  3. PRADAXA [Suspect]
     Indication: ATRIAL FIBRILLATION
     Dosage: 150 MG, 2 DAY, INTRAOCULAR
     Route: 031
     Dates: start: 20120504, end: 20120724

REACTIONS (1)
  - THERAPEUTIC RESPONSE DECREASED [None]
